FAERS Safety Report 6450963-8 (Version None)
Quarter: 2009Q4

REPORT INFORMATION
  Report Type: 
  Country: None (occurrence: None)
  Receive Date: 20091123
  Receipt Date: 20091117
  Transmission Date: 20100525
  Serious: Yes (Hospitalization)
  Sender: FDA-Public Use
  Company Number: A0818248A

PATIENT
  Age: 62 Year
  Sex: Female

DRUGS (2)
  1. AVANDAMET [Suspect]
     Route: 065
     Dates: start: 20000101, end: 20020101
  2. AVANDIA [Suspect]
     Route: 065
     Dates: start: 20020101, end: 20070101

REACTIONS (3)
  - CARDIAC FAILURE CONGESTIVE [None]
  - FRACTURE [None]
  - MYOCARDIAL INFARCTION [None]
